FAERS Safety Report 6198474-1 (Version None)
Quarter: 2009Q2

REPORT INFORMATION
  Report Type: 
  Country: None (occurrence: None)
  Receive Date: 20090521
  Receipt Date: 20090512
  Transmission Date: 20091009
  Serious: Yes (Other)
  Sender: FDA-Public Use
  Company Number: PHHY2009JP18350

PATIENT
  Age: 67 Year
  Sex: Male

DRUGS (3)
  1. TEGRETOL [Suspect]
     Indication: EPILEPSY
     Dosage: 100 MG DAILY
     Route: 048
  2. AMLODIPINE [Concomitant]
     Route: 048
  3. ENALAPRIL MALEATE [Concomitant]

REACTIONS (3)
  - ATRIAL FIBRILLATION [None]
  - BRADYARRHYTHMIA [None]
  - BRADYCARDIA [None]
